FAERS Safety Report 7245160-2 (Version None)
Quarter: 2011Q1

REPORT INFORMATION
  Report Type: 
  Country: None (occurrence: None)
  Receive Date: 20110126
  Receipt Date: 20110117
  Transmission Date: 20110831
  Serious: Yes (Hospitalization)
  Sender: FDA-Public Use
  Company Number: JP-ASTRAZENECA-2010SE60033

PATIENT
  Age: 50 Year
  Sex: Male

DRUGS (3)
  1. SPORAMIN [Suspect]
     Route: 030
     Dates: start: 20101215, end: 20101215
  2. GASCON [Suspect]
     Route: 048
     Dates: start: 20101215, end: 20101215
  3. XYLOCAINE VISCOUS [Suspect]
     Indication: LOCAL ANAESTHESIA
     Route: 049
     Dates: start: 20101215, end: 20101215

REACTIONS (1)
  - ANAPHYLACTIC SHOCK [None]
